FAERS Safety Report 8320013 (Version 2)
Quarter: 2013Q2

REPORT INFORMATION
  Report Type: Spontaneous
  Country: US (occurrence: US)
  Receive Date: 20120103
  Receipt Date: 20130621
  Transmission Date: 20140414
  Serious: Yes (Hospitalization)
  Sender: FDA-Public Use
  Company Number: US-ARROW GEN-2011-22397

PATIENT
  Age: 22 Year
  Sex: Female

DRUGS (3)
  1. ALBUTEROL SULFATE (AMALLC) [Suspect]
     Indication: ASTHMA
     Dosage: TOTAL OF 5 ALBUTEROL NEBULIZATIONS (2.5 MG)
     Route: 050
  2. FLUTICASONE W/SALMETEROL [Concomitant]
     Indication: ASTHMA
     Dosage: 250/50 MICROGRAMS
     Route: 065
  3. MONTELUKAST [Concomitant]
     Indication: ASTHMA
     Dosage: 10 MG, UNKNOWN
     Route: 065

REACTIONS (1)
  - Lactic acidosis [Recovered/Resolved]
